FAERS Safety Report 7458861-8 (Version None)
Quarter: 2011Q2

REPORT INFORMATION
  Report Type: 
  Country: None (occurrence: None)
  Receive Date: 20110504
  Receipt Date: 20110421
  Transmission Date: 20111010
  Serious: Yes (Hospitalization)
  Sender: FDA-Public Use
  Company Number: US-MYLANLABS-2011S1008585

PATIENT
  Age: 57 Year
  Sex: Female

DRUGS (3)
  1. WARFARIN SODIUM [Suspect]
     Route: 065
  2. ARGATROBAN [Concomitant]
     Indication: HEPARIN-INDUCED THROMBOCYTOPENIA
     Route: 065
  3. FONDAPARINUX SODIUM [Concomitant]
     Route: 065

REACTIONS (1)
  - ISCHAEMIC STROKE [None]
